FAERS Safety Report 10574006 (Version 2)
Quarter: 2014Q4

REPORT INFORMATION
  Report Type: Spontaneous
  Country: IT (occurrence: IT)
  Receive Date: 20141110
  Receipt Date: 20141110
  Transmission Date: 20150529
  Serious: Yes (Other)
  Sender: FDA-Public Use
  Company Number: IT-GLAXOSMITHKLINE-B0980574A

PATIENT
  Age: 35 Year
  Sex: Male

DRUGS (1)
  1. VOTRIENT [Suspect]
     Active Substance: PAZOPANIB HYDROCHLORIDE
     Indication: FIBROSARCOMA
     Dosage: 80 MG, QD
     Route: 048
     Dates: start: 201402

REACTIONS (10)
  - Hair colour changes [Unknown]
  - Oral discomfort [Not Recovered/Not Resolved]
  - Malaise [Not Recovered/Not Resolved]
  - Erythema [Not Recovered/Not Resolved]
  - Seizure [Unknown]
  - Tachycardia [Not Recovered/Not Resolved]
  - Pulmonary mass [Recovering/Resolving]
  - Vomiting [Not Recovered/Not Resolved]
  - Diarrhoea [Not Recovered/Not Resolved]
  - Nodule [Recovering/Resolving]

NARRATIVE: CASE EVENT DATE: 20140320
